FAERS Safety Report 4973619-7 (Version None)
Quarter: 2006Q2

REPORT INFORMATION
  Report Type: 
  Country: None (occurrence: None)
  Receive Date: 20060413
  Receipt Date: 20060413
  Transmission Date: 20061013
  Serious: Yes (Hospitalization)
  Sender: FDA-Public Use
  Company Number: None

PATIENT
  Age: 66 Year
  Sex: Male

DRUGS (2)
  1. PREDNISONE [Suspect]
     Indication: CHRONIC OBSTRUCTIVE PULMONARY DISEASE
     Dosage: 60MG  PO
     Route: 048
     Dates: start: 20051231, end: 20060101
  2. GATIFLOXACIN [Suspect]
     Indication: CONDITION AGGRAVATED
     Dosage: 400MG  QD  PO
     Route: 048
     Dates: start: 20051231, end: 20060201

REACTIONS (1)
  - BLOOD GLUCOSE INCREASED [None]
